FAERS Safety Report 4348027-2 (Version None)
Quarter: 2004Q2

REPORT INFORMATION
  Report Type: 
  Country: None (occurrence: None)
  Receive Date: 20040422
  Receipt Date: 20040414
  Transmission Date: 20050107
  Serious: Yes (Death)
  Sender: FDA-Public Use
  Company Number: 2004015127

PATIENT
  Sex: Male
  Weight: 70 kg

DRUGS (3)
  1. VFEND [Suspect]
     Indication: ASPERGILLOSIS
     Dosage: SEE IMAGE
     Route: 042
     Dates: start: 20040212, end: 20040212
  2. VFEND [Suspect]
     Indication: ASPERGILLOSIS
     Dosage: SEE IMAGE
     Route: 042
     Dates: start: 20040213, end: 20040223
  3. OPIOIDS (OPIOIDS) [Concomitant]

REACTIONS (2)
  - RENAL FAILURE ACUTE [None]
  - SEPSIS [None]
